FAERS Safety Report 6992715-6 (Version None)
Quarter: 2010Q3

REPORT INFORMATION
  Report Type: 
  Country: None (occurrence: None)
  Receive Date: 20100917
  Receipt Date: 20100906
  Transmission Date: 20110219
  Serious: Yes (Hospitalization)
  Sender: FDA-Public Use
  Company Number: ES-ELI_LILLY_AND_COMPANY-ES201009001256

PATIENT
  Sex: Female
  Weight: 74 kg

DRUGS (4)
  1. FORTEO [Suspect]
     Indication: OSTEOPOROSIS
     Dosage: 20 UG, DAILY (1/D)
     Route: 058
     Dates: start: 20091001
  2. VASONASE [Concomitant]
     Indication: CARDIOVASCULAR INSUFFICIENCY
     Dosage: 40 MG, DAILY (1/D)
     Route: 048
  3. HEPARINA [Concomitant]
     Indication: IMMOBILE
     Dosage: UNK, DAILY (1/D)
     Route: 058
  4. NOLOTIL [Concomitant]
     Indication: PAIN
     Dosage: UNK, AS NEEDED
     Route: 065

REACTIONS (1)
  - SKIN INFECTION [None]
